FAERS Safety Report 5885535-7 (Version None)
Quarter: 2008Q3

REPORT INFORMATION
  Report Type: 
  Country: None (occurrence: None)
  Receive Date: 20080916
  Receipt Date: 20080908
  Transmission Date: 20090109
  Serious: Yes (Other)
  Sender: FDA-Public Use
  Company Number: BR-ABBOTT-08P-020-0474990-00

PATIENT
  Sex: Male
  Weight: 90 kg

DRUGS (2)
  1. DEPAKENE [Suspect]
     Indication: CONVULSION
     Route: 048
     Dates: start: 20051001, end: 20080801
  2. TOPIRAMATE [Suspect]
     Indication: CONVULSION
     Dates: start: 20080801

REACTIONS (2)
  - CONVULSION [None]
  - HEADACHE [None]
